FAERS Safety Report 4433035-3 (Version None)
Quarter: 2004Q3

REPORT INFORMATION
  Report Type: 
  Country: None (occurrence: None)
  Receive Date: 20040721
  Receipt Date: 20030806
  Transmission Date: 20050211
  Serious: Yes (Disabling, Other)
  Sender: FDA-Public Use
  Company Number: WAES 0308USA00748

PATIENT
  Age: 70 Year
  Sex: Female
  Weight: 107.9561 kg

DRUGS (9)
  1. VIOXX [Suspect]
     Indication: BACK PAIN
     Dosage: 25 MG/PO
     Route: 048
     Dates: start: 20010101, end: 20030801
  2. VIOXX [Suspect]
     Indication: OSTEOARTHRITIS
     Dosage: 25 MG/PO
     Route: 048
     Dates: start: 20010101, end: 20030801
  3. FOSAMAX [Concomitant]
  4. LEVOXYL [Concomitant]
  5. LIPITOR [Concomitant]
  6. NEURONTIN [Concomitant]
  7. PRILOSEC [Concomitant]
  8. PROZAC [Concomitant]
  9. TOPROL-XL [Concomitant]

REACTIONS (1)
  - RENAL FAILURE ACUTE [None]
